FAERS Safety Report 6695184-9 (Version None)
Quarter: 2010Q2

REPORT INFORMATION
  Report Type: 
  Country: None (occurrence: None)
  Receive Date: 20100423
  Receipt Date: 20100412
  Transmission Date: 20101027
  Serious: Yes (Life-Threatening, Hospitalization, Other)
  Sender: FDA-Public Use
  Company Number: GB-WATSON-2010-04431

PATIENT

DRUGS (9)
  1. FENTANYL CITRATE [Suspect]
     Indication: GENERAL ANAESTHESIA
     Dosage: 8 MCG/KG
     Route: 065
     Dates: start: 20070101, end: 20070101
  2. VECURONIUM BROMIDE (WATSON LABORATORIES) [Suspect]
     Indication: GENERAL ANAESTHESIA
     Dosage: 0.1 MG/KG, UNK
     Route: 065
     Dates: start: 20070101, end: 20070101
  3. HEPARIN SODIUM [Suspect]
     Indication: DRUG USE FOR UNKNOWN INDICATION
     Dosage: UNK
  4. ETOMIDATE [Suspect]
     Indication: GENERAL ANAESTHESIA
     Dosage: 0.15 MG/KG
     Route: 065
     Dates: start: 20070101, end: 20070101
  5. SUXAMETHONIUM [Suspect]
     Indication: GENERAL ANAESTHESIA
     Dosage: 1.5 MG/KG, EXPOSURE IN 3RD TRIMESTER
     Route: 065
     Dates: start: 20070101, end: 20070101
  6. SILDENAFIL [Suspect]
     Indication: PULMONARY HYPERTENSION
     Dosage: UNK
     Route: 048
  7. ILOPROST [Suspect]
     Indication: VASODILATATION
     Dosage: UNK
     Route: 055
  8. ILOPROST [Suspect]
     Dosage: UNK
     Route: 048
  9. LOW MOLECULAR WEIGHT HEPARIN [Suspect]

REACTIONS (6)
  - BRADYCARDIA [None]
  - CARDIAC ARREST [None]
  - DRUG EXPOSURE DURING PREGNANCY [None]
  - DYSPNOEA [None]
  - LIVE BIRTH [None]
  - OXYGEN SATURATION DECREASED [None]
